FAERS Safety Report 24027316 (Version 3)
Quarter: 2025Q3

REPORT INFORMATION
  Report Type: Report from Study
  Country: US (occurrence: US)
  Receive Date: 20240628
  Receipt Date: 20250816
  Transmission Date: 20251020
  Serious: Yes (Other)
  Sender: ALEXION PHARMACEUTICALS
  Company Number: US-ALXN-A202311079AA

PATIENT
  Sex: Female

DRUGS (1)
  1. STRENSIQ [Suspect]
     Active Substance: ASFOTASE ALFA
     Route: 065

REACTIONS (7)
  - Lipodystrophy acquired [Unknown]
  - Spinal pain [Unknown]
  - Injection site pain [Unknown]
  - Bone pain [Unknown]
  - Headache [Unknown]
  - Anxiety [Unknown]
  - Insurance issue [Unknown]

NARRATIVE: CASE EVENT DATE: 20230601
